FAERS Safety Report 4337287-X (Version None)
Quarter: 2004Q2

REPORT INFORMATION
  Report Type: 
  Country: None (occurrence: None)
  Receive Date: 20040406
  Receipt Date: 20040205
  Transmission Date: 20050107
  Serious: Yes (Hospitalization, Other)
  Sender: FDA-Public Use
  Company Number: HQWYE874209FEB04

PATIENT
  Age: 79 Year
  Sex: Female
  Weight: 81.72 kg

DRUGS (4)
  1. PROTONIX [Suspect]
     Indication: UPPER GASTROINTESTINAL HAEMORRHAGE
     Dosage: 40 MG 1X PER 12 HR, INTRAVENOUS
     Route: 042
     Dates: start: 20040204, end: 20040204
  2. GLYBURIDE [Concomitant]
  3. IMDUR [Concomitant]
  4. ACETYLSALICYLIC ACID SRT [Concomitant]

REACTIONS (1)
  - ANGIONEUROTIC OEDEMA [None]
